FAERS Safety Report 13375554 (Version 3)
Quarter: 2017Q2

REPORT INFORMATION
  Report Type: Report from Study
  Country: US (occurrence: US)
  Receive Date: 20170328
  Receipt Date: 20170519
  Transmission Date: 20170830
  Serious: No
  Sender: FDA-Public Use
  Company Number: US-AMGEN-USASL2017043758

PATIENT
  Age: 66 Year
  Sex: Female

DRUGS (2)
  1. DICLOFENAC [Suspect]
     Active Substance: DICLOFENAC
     Indication: OSTEOARTHRITIS
     Dosage: UNK
     Route: 065
  2. ENBREL [Suspect]
     Active Substance: ETANERCEPT
     Indication: RHEUMATOID ARTHRITIS
     Dosage: 50 MG, QWK
     Route: 065
     Dates: start: 201612

REACTIONS (12)
  - Osteoarthritis [Unknown]
  - Weight increased [Not Recovered/Not Resolved]
  - Asthma [Unknown]
  - Injection site pain [Recovered/Resolved]
  - Dyspnoea [Unknown]
  - Discomfort [Unknown]
  - Wheezing [Unknown]
  - Renal disorder [Unknown]
  - Malaise [Unknown]
  - Injection site erythema [Recovered/Resolved]
  - Fatigue [Recovering/Resolving]
  - Fluid retention [Unknown]

NARRATIVE: CASE EVENT DATE: 2017
